FAERS Safety Report 25532995 (Version 1)
Quarter: 2025Q3

REPORT INFORMATION
  Report Type: Report from Study
  Country: CA (occurrence: CA)
  Receive Date: 20250709
  Receipt Date: 20250709
  Transmission Date: 20251021
  Serious: Yes (Other)
  Sender: JOHNSON AND JOHNSON
  Company Number: CA-JNJFOC-20250607445

PATIENT
  Age: 44 Year
  Sex: Female

DRUGS (4)
  1. REMICADE [Suspect]
     Active Substance: INFLIXIMAB
     Indication: Crohn^s disease
     Route: 041
  2. REMICADE [Suspect]
     Active Substance: INFLIXIMAB
     Route: 041
  3. METOPROLOL [Suspect]
     Active Substance: METOPROLOL
     Indication: Product used for unknown indication
     Route: 048
  4. METOPROLOL [Suspect]
     Active Substance: METOPROLOL
     Route: 048

REACTIONS (7)
  - Palpitations [Not Recovered/Not Resolved]
  - Syncope [Not Recovered/Not Resolved]
  - Supraventricular tachycardia [Not Recovered/Not Resolved]
  - Dyspnoea [Not Recovered/Not Resolved]
  - Dizziness [Unknown]
  - Heart rate irregular [Unknown]
  - Chest discomfort [Not Recovered/Not Resolved]

NARRATIVE: CASE EVENT DATE: 20250403
